FAERS Safety Report 15095986 (Version 1)
Quarter: 2018Q3

REPORT INFORMATION
  Report Type: Report from Study
  Country: CN (occurrence: CN)
  Receive Date: 20180702
  Receipt Date: 20180702
  Transmission Date: 20181010
  Serious: Yes (Hospitalization)
  Sender: FDA-Public Use
  Company Number: CN-ACCORD-068988

PATIENT
  Age: 28 Year
  Sex: Female

DRUGS (2)
  1. METHOTREXATE. [Suspect]
     Active Substance: METHOTREXATE
     Indication: PLACENTA ACCRETA
     Dosage: EVERY OTHER DAY (Q.O.D), 3 TIMES
     Route: 030
  2. MIFEPRISTONE [Suspect]
     Active Substance: MIFEPRISTONE
     Indication: PLACENTA ACCRETA
     Dosage: 50 MG, TWICE DAILY, FOR 2?3 DAYS, P.O
     Route: 048

REACTIONS (1)
  - Bacteraemia [Recovered/Resolved]
